FAERS Safety Report 10012146 (Version 1)
Quarter: 2014Q1

REPORT INFORMATION
  Report Type: Spontaneous
  Country: US (occurrence: US)
  Receive Date: 20140314
  Receipt Date: 20140314
  Transmission Date: 20141002
  Serious: Yes (Other)
  Sender: FDA-Public Use
  Company Number: US-GLAXOSMITHKLINE-A1064765A

PATIENT
  Age: 26 Year
  Sex: Female

DRUGS (1)
  1. ARIXTRA [Suspect]
     Indication: ILL-DEFINED DISORDER
     Dosage: 2.5MG UNKNOWN
     Route: 042

REACTIONS (4)
  - Road traffic accident [Unknown]
  - Impaired work ability [Unknown]
  - Rehabilitation therapy [Unknown]
  - Exposure during pregnancy [Unknown]
